FAERS Safety Report 19481698 (Version 2)
Quarter: 2021Q3

REPORT INFORMATION
  Report Type: Spontaneous
  Country: US (occurrence: US)
  Receive Date: 20210701
  Receipt Date: 20210816
  Transmission Date: 20211014
  Serious: Yes (Other)
  Sender: FDA-Public Use
  Company Number: US-PFIZER INC-2021733055

PATIENT
  Age: 38 Year
  Sex: Female

DRUGS (10)
  1. IMMUNOGLOBULIN [IMMUNOGLOBULIN HUMAN NORMAL] [Suspect]
     Active Substance: HUMAN IMMUNOGLOBULIN G
     Indication: IMMUNOSUPPRESSANT DRUG THERAPY
     Dosage: UNK
  2. IMMUNOGLOBULIN [IMMUNOGLOBULIN HUMAN NORMAL] [Suspect]
     Active Substance: HUMAN IMMUNOGLOBULIN G
     Indication: PLACENTAL DISORDER
  3. PREDNISONE. [Suspect]
     Active Substance: PREDNISONE
     Indication: PLACENTAL DISORDER
     Dosage: UNK
  4. LOW?MOLECULAR?WEIGHT HEPARIN CALCIUM [Suspect]
     Active Substance: HEPARIN CALCIUM
     Indication: ANTICOAGULANT THERAPY
  5. ASPIRIN (E.C.) [Suspect]
     Active Substance: ASPIRIN
     Indication: PLACENTAL DISORDER
     Dosage: UNK
  6. ADALIMUMAB PFIZER [Suspect]
     Active Substance: ADALIMUMAB
     Indication: IMMUNOSUPPRESSANT DRUG THERAPY
  7. PREDNISONE. [Suspect]
     Active Substance: PREDNISONE
     Indication: IMMUNOSUPPRESSANT DRUG THERAPY
  8. ASPIRIN (E.C.) [Suspect]
     Active Substance: ASPIRIN
     Indication: ANTICOAGULANT THERAPY
  9. ADALIMUMAB PFIZER [Suspect]
     Active Substance: ADALIMUMAB
     Indication: PLACENTAL DISORDER
     Dosage: UNK
  10. LOW?MOLECULAR?WEIGHT HEPARIN CALCIUM [Suspect]
     Active Substance: HEPARIN CALCIUM
     Indication: PLACENTAL DISORDER
     Dosage: UNK

REACTIONS (4)
  - Pre-eclampsia [Unknown]
  - Hypertension [Unknown]
  - Foetal growth restriction [Unknown]
  - Maternal exposure during pregnancy [Unknown]
